FAERS Safety Report 23593989 (Version 3)
Quarter: 2024Q2

REPORT INFORMATION
  Report Type: Spontaneous
  Country: JP (occurrence: JP)
  Receive Date: 20240305
  Receipt Date: 20240412
  Transmission Date: 20240716
  Serious: Yes (Death, Other)
  Sender: FDA-Public Use
  Company Number: JP-SANDOZ INC.-SDZ2024JP021441

PATIENT
  Age: 86 Year
  Sex: Female
  Weight: 110.6 kg

DRUGS (7)
  1. MIDAZOLAM HYDROCHLORIDE [Suspect]
     Active Substance: MIDAZOLAM HYDROCHLORIDE
     Dosage: 1 MG, QD
     Route: 042
     Dates: start: 20230411, end: 20230411
  2. MIDAZOLAM HYDROCHLORIDE [Suspect]
     Active Substance: MIDAZOLAM HYDROCHLORIDE
     Indication: Sedation
     Dosage: 2 MG, QD
     Route: 042
     Dates: start: 20230410, end: 20230410
  3. PENTAZOCINE [Suspect]
     Active Substance: PENTAZOCINE
     Indication: Anaesthesia procedure
     Dosage: 7.5 MG, QD
     Route: 042
     Dates: start: 20230410, end: 20230411
  4. XYLOCAINE [Suspect]
     Active Substance: LIDOCAINE HYDROCHLORIDE
     Indication: Anaesthesia procedure
     Dosage: USUALLY 1-5 SPRAYS AT A TIME
     Route: 055
     Dates: start: 20230410, end: 20230411
  5. EPINEPHRINE [Concomitant]
     Active Substance: EPINEPHRINE
     Indication: Product used for unknown indication
     Dosage: UNK
     Route: 065
     Dates: start: 20230411
  6. BUTYLSCOPOLAMINE BROMIDE [Concomitant]
     Active Substance: BUTYLSCOPOLAMINE BROMIDE
     Indication: Product used for unknown indication
     Dosage: 20 MG
     Route: 065
  7. FLUMAZENIL [Concomitant]
     Active Substance: FLUMAZENIL
     Indication: Product used for unknown indication
     Dosage: UNK
     Route: 065
     Dates: start: 20230411

REACTIONS (1)
  - Anaphylactic shock [Fatal]

NARRATIVE: CASE EVENT DATE: 20230411
